FAERS Safety Report 25422658 (Version 1)
Quarter: 2025Q2

REPORT INFORMATION
  Report Type: Spontaneous
  Country: IN (occurrence: IN)
  Receive Date: 20250611
  Receipt Date: 20250611
  Transmission Date: 20250717
  Serious: Yes (Other)
  Sender: PFIZER
  Company Number: IN-PFIZER INC-PV202500008217

PATIENT
  Age: 86 Year
  Sex: Male

DRUGS (4)
  1. LORLATINIB [Suspect]
     Active Substance: LORLATINIB
     Dosage: 50 MG, 1X/DAY
     Route: 048
     Dates: start: 20250108
  2. ALPRAZOLAM [Concomitant]
     Active Substance: ALPRAZOLAM
  3. LOPERAMIDE [Concomitant]
     Active Substance: LOPERAMIDE
  4. ALECTINIB [Concomitant]
     Active Substance: ALECTINIB

REACTIONS (6)
  - Metastases to central nervous system [Unknown]
  - Diabetes mellitus [Unknown]
  - Blood test abnormal [Unknown]
  - Lipids increased [Unknown]
  - Hypertension [Unknown]
  - Asthenia [Unknown]
